FAERS Safety Report 10280922 (Version 3)
Quarter: 2014Q3

REPORT INFORMATION
  Report Type: Spontaneous
  Country: FR (occurrence: FR)
  Receive Date: 20140707
  Receipt Date: 20140718
  Transmission Date: 20150326
  Serious: Yes (Other)
  Sender: FDA-Public Use
  Company Number: FR-GALDERMA-FR14002210

PATIENT
  Age: 46 Year
  Sex: Female
  Weight: 59 kg

DRUGS (3)
  1. FOOD SUPPLEMENT BIOCONSEIL [Concomitant]
     Indication: MENOPAUSE
     Route: 048
  2. EPIDUO [Suspect]
     Active Substance: ADAPALENE\BENZOYL PEROXIDE
     Indication: ACNE
     Dosage: 0.1% ADAPALENE, 2.5% BENZOYL PEROXIDE
     Route: 061
     Dates: start: 20140408, end: 20140408
  3. BORAGE OIL (BIOCONSEILS LABORATOIRES YVES PONROY) [Concomitant]
     Indication: MENOPAUSE

REACTIONS (5)
  - Application site reaction [Recovered/Resolved]
  - Drug hypersensitivity [None]
  - Application site oedema [Recovered/Resolved]
  - Application site burn [Recovered/Resolved]
  - Thermal burn [Recovered/Resolved]

NARRATIVE: CASE EVENT DATE: 20140408
